FAERS Safety Report 7239188-6 (Version None)
Quarter: 2011Q1

REPORT INFORMATION
  Report Type: 
  Country: None (occurrence: None)
  Receive Date: 20110121
  Receipt Date: 20110119
  Transmission Date: 20110831
  Serious: Yes (Disabling)
  Sender: FDA-Public Use
  Company Number: GB-EISAI INC-E2020-08383-SPO-GB

PATIENT
  Age: 70 Year
  Sex: Female

DRUGS (6)
  1. SIMVASTATIN [Concomitant]
  2. ARICEPT [Suspect]
     Route: 048
  3. AMLODIPINE [Concomitant]
     Indication: HYPERTENSION
  4. OMEPRAZOLE [Concomitant]
  5. PARACETAMOL [Concomitant]
     Indication: PAIN
  6. AMOXICILLIN [Interacting]
     Dosage: UNKNOWN
     Route: 048

REACTIONS (2)
  - MEMORY IMPAIRMENT [None]
  - INHIBITORY DRUG INTERACTION [None]
